FAERS Safety Report 4602241-7 (Version None)
Quarter: 2005Q1

REPORT INFORMATION
  Report Type: 
  Country: None (occurrence: None)
  Receive Date: 20050201
  Receipt Date: 20040405
  Transmission Date: 20050727
  Serious: Yes (Hospitalization)
  Sender: FDA-Public Use
  Company Number: 200417527BWH

PATIENT
  Age: 62 Year
  Sex: Female
  Weight: 70.3075 kg

DRUGS (6)
  1. AVELOX [Suspect]
     Indication: BRONCHITIS
     Dosage: 400 MG, TOTAL DAILY, ORAL
     Route: 048
     Dates: start: 20040219
  2. AVELOX [Suspect]
     Indication: SINUSITIS
     Dosage: 400 MG, TOTAL DAILY, ORAL
     Route: 048
     Dates: start: 20040219
  3. NEXIUM [Concomitant]
  4. ACTONEL [Concomitant]
  5. DILANTIN [Concomitant]
  6. ZITHROMAX [Concomitant]

REACTIONS (6)
  - BLISTER [None]
  - DYSPHAGIA [None]
  - PHARYNGOLARYNGEAL PAIN [None]
  - PRURITUS [None]
  - STEVENS-JOHNSON SYNDROME [None]
  - URTICARIA [None]
